FAERS Safety Report 16260182 (Version 5)
Quarter: 2019Q4

REPORT INFORMATION
  Report Type: Spontaneous
  Country: US (occurrence: US)
  Receive Date: 20190501
  Receipt Date: 20191113
  Transmission Date: 20200122
  Serious: No
  Sender: FDA-Public Use
  Company Number: US-PFIZER INC-2019183470

PATIENT
  Age: 70 Year
  Sex: Female
  Weight: 63.5 kg

DRUGS (2)
  1. IBRANCE [Suspect]
     Active Substance: PALBOCICLIB
     Dosage: 100 MG, CYCLIC (TAKE ONE DAILY FOR 2 WEEKS AND THEN OFF 1 WEEK)
     Dates: start: 20190512, end: 2019
  2. IBRANCE [Suspect]
     Active Substance: PALBOCICLIB
     Indication: BREAST CANCER METASTATIC
     Dosage: 125 MG, CYCLIC (1 CAPSULE BY MOUTH DAILY FOR X 21 DAYS THEN OFF 7 DAYS)
     Route: 048
     Dates: start: 201902, end: 2019

REACTIONS (1)
  - Blood count abnormal [Recovering/Resolving]

NARRATIVE: CASE EVENT DATE: 201902
